FAERS Safety Report 6424887-6 (Version None)
Quarter: 2009Q4

REPORT INFORMATION
  Report Type: 
  Country: None (occurrence: None)
  Receive Date: 20091103
  Receipt Date: 20091021
  Transmission Date: 20100525
  Serious: Yes (Hospitalization)
  Sender: FDA-Public Use
  Company Number: ES-ELI_LILLY_AND_COMPANY-ES200910005671

PATIENT
  Age: 72 Year
  Sex: Female

DRUGS (3)
  1. FORTEO [Suspect]
     Indication: OSTEOPOROSIS
     Dosage: 20 UG, UNK
     Route: 058
     Dates: start: 20080901, end: 20091014
  2. FORTEO [Suspect]
     Dosage: 20 UG, UNK
     Route: 058
     Dates: start: 20091021
  3. INFLUENZA [Concomitant]
     Dates: start: 20090101

REACTIONS (4)
  - BRONCHOPNEUMONIA [None]
  - DECREASED ACTIVITY [None]
  - INFLUENZA [None]
  - PAIN [None]
